FAERS Safety Report 10936737 (Version 1)
Quarter: 2015Q1

REPORT INFORMATION
  Report Type: Spontaneous
  Country: US (occurrence: None)
  Receive Date: 20150320
  Receipt Date: 20150320
  Transmission Date: 20150721
  Serious: No
  Sender: FDA-Public Use
  Company Number: None

PATIENT
  Sex: Female
  Weight: 62.14 kg

DRUGS (1)
  1. RALOXIFENE HCL [Suspect]
     Active Substance: RALOXIFENE
     Indication: OSTEOPENIA
     Dosage: ONCE
     Route: 048
     Dates: start: 20150114, end: 20150210

REACTIONS (3)
  - Nausea [None]
  - Condition aggravated [None]
  - Hot flush [None]
